FAERS Safety Report 9492835 (Version 1)
Quarter: 2013Q3

REPORT INFORMATION
  Report Type: Spontaneous
  Country: US (occurrence: US)
  Receive Date: 20130831
  Receipt Date: 20130831
  Transmission Date: 20140515
  Serious: Yes (Other)
  Sender: FDA-Public Use
  Company Number: US-JNJFOC-20130813888

PATIENT
  Age: 41 Year
  Sex: Female
  Weight: 58.97 kg

DRUGS (3)
  1. ZYRTEC [Suspect]
     Route: 065
  2. ZYRTEC [Suspect]
     Indication: HYPERSENSITIVITY
     Route: 065
     Dates: start: 201308
  3. METHYLPREDNISOLONE [Suspect]
     Indication: HYPERSENSITIVITY
     Route: 065
     Dates: start: 201308

REACTIONS (6)
  - Throat tightness [Unknown]
  - Dysphonia [Unknown]
  - Muscle tightness [Unknown]
  - Drug ineffective [Unknown]
  - Dyspnoea [Unknown]
  - Hypersensitivity [Unknown]
